FAERS Safety Report 16887166 (Version 1)
Quarter: 2019Q4

REPORT INFORMATION
  Report Type: Spontaneous
  Country: US (occurrence: US)
  Receive Date: 20191004
  Receipt Date: 20191004
  Transmission Date: 20200122
  Serious: No
  Sender: FDA-Public Use
  Company Number: US-009507513-1910USA003283

PATIENT
  Sex: Female

DRUGS (17)
  1. AZITHROMYCIN ANHYDROUS. [Concomitant]
     Active Substance: AZITHROMYCIN ANHYDROUS
  2. VERAPAMIL [Concomitant]
     Active Substance: VERAPAMIL HYDROCHLORIDE
  3. ZOLPIDEM [Concomitant]
     Active Substance: ZOLPIDEM TARTRATE
  4. ASPIRIN. [Concomitant]
     Active Substance: ASPIRIN
  5. ESTRADIOL. [Concomitant]
     Active Substance: ESTRADIOL
  6. ESTRADIOL. [Concomitant]
     Active Substance: ESTRADIOL
  7. FOLLISTIM AQ [Suspect]
     Active Substance: FOLLITROPIN
     Indication: INFERTILITY
     Dosage: 300/350 UNITS AS DIRECTED, QD 10/14 DAYS
     Route: 058
     Dates: start: 20190810
  8. ENDOMETRIN [Concomitant]
     Active Substance: PROGESTERONE
  9. INDOMETHACIN. [Concomitant]
     Active Substance: INDOMETHACIN
  10. SUMATRIPTAN. [Concomitant]
     Active Substance: SUMATRIPTAN
  11. TRAMADOL HYDROCHLORIDE. [Concomitant]
     Active Substance: TRAMADOL HYDROCHLORIDE
  12. PUREGON PEN [DEVICE] [Suspect]
     Active Substance: DEVICE
  13. GONADOTROPIN, CHORIONIC [Concomitant]
     Active Substance: CHORIOGONADOTROPIN ALFA
  14. MENOPUR [Concomitant]
     Active Substance: FOLLITROPIN\LUTEINIZING HORMONE
  15. CABERGOLINE. [Concomitant]
     Active Substance: CABERGOLINE
  16. HYDROCHLOROTHIAZIDE. [Concomitant]
     Active Substance: HYDROCHLOROTHIAZIDE
  17. GANIRELIX ACETATE. [Concomitant]
     Active Substance: GANIRELIX ACETATE

REACTIONS (2)
  - Drug interaction [Unknown]
  - Injection site urticaria [Unknown]
